FAERS Safety Report 8905739 (Version 1)
Quarter: 2012Q4

REPORT INFORMATION
  Report Type: 
  Country: BR (occurrence: BR)
  Receive Date: 20121113
  Receipt Date: 20121113
  Transmission Date: 20130627
  Serious: Yes (Other)
  Sender: FDA-Public Use
  Company Number: BR-MERCK-1211BRA004300

PATIENT
  Age: 61 None
  Sex: Female
  Weight: 60 kg

DRUGS (4)
  1. PEG-INTRON [Suspect]
     Indication: HEPATITIS C
     Dosage: UNK Microgram, qw
     Route: 058
     Dates: start: 2008
  2. PEG-INTRON [Suspect]
     Dosage: UNK Microgram, qw
     Route: 058
     Dates: start: 201206, end: 20121031
  3. RIBAVIRIN [Concomitant]
     Indication: HEPATITIS C
     Dosage: UNK mg, Unknown
     Route: 048
     Dates: start: 2008
  4. RIBAVIRIN [Concomitant]
     Dosage: 500 mg, q12h
     Route: 048
     Dates: start: 2012

REACTIONS (6)
  - Nephrectomy [Unknown]
  - Drug ineffective [Unknown]
  - Anaemia [Not Recovered/Not Resolved]
  - Ascites [Not Recovered/Not Resolved]
  - Varices oesophageal [Unknown]
  - Drug ineffective [Unknown]
